FAERS Safety Report 9365759 (Version 2)
Quarter: 2013Q3

REPORT INFORMATION
  Report Type: Spontaneous
  Country: US (occurrence: US)
  Receive Date: 20130625
  Receipt Date: 20130813
  Transmission Date: 20140515
  Serious: Yes (Hospitalization)
  Sender: FDA-Public Use
  Company Number: US-BAYER-2013-077580

PATIENT
  Age: 25 Year
  Sex: Female

DRUGS (4)
  1. BEYAZ [Suspect]
     Dosage: UNK
     Dates: start: 201106, end: 201107
  2. MORPHINE SULFATE [Concomitant]
     Indication: PAIN
  3. ZOFRAN [Concomitant]
     Dosage: 4 MG, UNK
  4. NORCO [Concomitant]

REACTIONS (7)
  - Pulmonary embolism [None]
  - Injury [None]
  - Pain [None]
  - Emotional distress [None]
  - Anxiety [None]
  - General physical health deterioration [None]
  - Pain [None]
